FAERS Safety Report 23321327 (Version 2)
Quarter: 2023Q4

REPORT INFORMATION
  Report Type: Spontaneous
  Country: JP (occurrence: JP)
  Receive Date: 20231220
  Receipt Date: 20231227
  Transmission Date: 20240110
  Serious: Yes (Death, Life-Threatening, Hospitalization)
  Sender: FDA-Public Use
  Company Number: JP-DSJP-DSJ-2023-151171AA

PATIENT
  Age: 8 Decade
  Sex: Female

DRUGS (1)
  1. ENHERTU [Suspect]
     Active Substance: FAM-TRASTUZUMAB DERUXTECAN-NXKI
     Indication: HER2 positive breast cancer
     Dosage: UNK
     Route: 065
     Dates: start: 20230310, end: 20230916

REACTIONS (4)
  - Interstitial lung disease [Fatal]
  - Pneumothorax [Fatal]
  - COVID-19 [Recovered/Resolved]
  - Femur fracture [Unknown]

NARRATIVE: CASE EVENT DATE: 20230811
